FAERS Safety Report 5994629-7 (Version None)
Quarter: 2008Q4

REPORT INFORMATION
  Report Type: 
  Country: None (occurrence: None)
  Receive Date: 20081212
  Receipt Date: 20081107
  Transmission Date: 20090506
  Serious: No
  Sender: FDA-Public Use
  Company Number: US-ABBOTT-08P-163-0475653-00

PATIENT
  Sex: Female
  Weight: 107 kg

DRUGS (2)
  1. HUMIRA [Suspect]
     Indication: PSORIASIS
     Route: 058
     Dates: start: 20080813, end: 20080907
  2. HUMIRA [Suspect]
     Dates: start: 20080901

REACTIONS (12)
  - ABNORMAL SENSATION IN EYE [None]
  - COUGH [None]
  - EAR CONGESTION [None]
  - FUNGAL INFECTION [None]
  - GINGIVAL PAIN [None]
  - LARYNGITIS [None]
  - NASAL CONGESTION [None]
  - NASOPHARYNGITIS [None]
  - OROPHARYNGEAL PAIN [None]
  - PRODUCTIVE COUGH [None]
  - SINUSITIS [None]
  - SPUTUM DISCOLOURED [None]
